FAERS Safety Report 12916281 (Version 1)
Quarter: 2016Q4

REPORT INFORMATION
  Report Type: Spontaneous
  Country: US (occurrence: US)
  Receive Date: 20161107
  Receipt Date: 20161107
  Transmission Date: 20170207
  Serious: Yes (Life-Threatening, Disabling)
  Sender: FDA-Public Use
  Company Number: None

PATIENT
  Age: 42 Year
  Sex: Male
  Weight: 86.64 kg

DRUGS (2)
  1. PRILOSEC [Concomitant]
     Active Substance: OMEPRAZOLE MAGNESIUM
  2. BENTYL [Suspect]
     Active Substance: DICYCLOMINE HYDROCHLORIDE
     Indication: IRRITABLE BOWEL SYNDROME
     Dosage: BENTYL - 1 PILL PO BID?
     Route: 048
     Dates: start: 20110222, end: 20150521

REACTIONS (12)
  - Altered state of consciousness [None]
  - Hyperhidrosis [None]
  - Body temperature increased [None]
  - Chest pain [None]
  - Victim of crime [None]
  - Dyspnoea [None]
  - Myocardial infarction [None]
  - Vein discolouration [None]
  - Vision blurred [None]
  - Pulse abnormal [None]
  - Amnesia [None]
  - Micturition disorder [None]

NARRATIVE: CASE EVENT DATE: 201302
